FAERS Safety Report 8440016-1 (Version None)
Quarter: 2012Q2

REPORT INFORMATION
  Report Type: 
  Country: None (occurrence: None)
  Receive Date: 20120615
  Receipt Date: 20120608
  Transmission Date: 20120825
  Serious: Yes (Hospitalization)
  Sender: FDA-Public Use
  Company Number: US-B.I. PHARMACEUTICALS,INC./RIDGEFIELD-2012-BP-13389BP

PATIENT
  Age: 88 Year
  Sex: Female

DRUGS (4)
  1. STATINS [Concomitant]
     Indication: HYPERLIPIDAEMIA
  2. CHEMO [Concomitant]
     Indication: BREAST CANCER
  3. PRADAXA [Suspect]
     Indication: ATRIAL FIBRILLATION
     Dosage: 300 MG
     Route: 048
  4. ORAL AGENTS [Concomitant]
     Indication: TYPE 2 DIABETES MELLITUS

REACTIONS (2)
  - COAGULOPATHY [None]
  - RENAL FAILURE ACUTE [None]
